FAERS Safety Report 8089673-2 (Version None)
Quarter: 2012Q1

REPORT INFORMATION
  Report Type: 
  Country: None (occurrence: None)
  Receive Date: 20120128
  Receipt Date: 20110628
  Transmission Date: 20120608
  Serious: No
  Sender: FDA-Public Use
  Company Number: US-ABBOTT-11P-163-0835948-00

PATIENT
  Age: 26 Year
  Sex: Male

DRUGS (3)
  1. HUMIRA [Suspect]
     Indication: PSORIATIC ARTHROPATHY
     Dates: start: 20100801, end: 20101218
  2. HUMIRA [Suspect]
     Dates: start: 20110616
  3. PRILOSEC OTC [Concomitant]
     Indication: PRODUCT USED FOR UNKNOWN INDICATION
     Dates: start: 20080101

REACTIONS (8)
  - PYREXIA [None]
  - PSORIASIS [None]
  - TONSILLAR DISORDER [None]
  - PSORIATIC ARTHROPATHY [None]
  - LYMPHADENOPATHY [None]
  - EPSTEIN-BARR VIRUS INFECTION [None]
  - UPPER RESPIRATORY TRACT INFECTION [None]
  - OPEN WOUND [None]
